FAERS Safety Report 8060009-6 (Version None)
Quarter: 2012Q1

REPORT INFORMATION
  Report Type: 
  Country: None (occurrence: None)
  Receive Date: 20120120
  Receipt Date: 20120117
  Transmission Date: 20120608
  Serious: Yes (Other)
  Sender: FDA-Public Use
  Company Number: US-JNJFOC-20120107639

PATIENT
  Age: 49 Year
  Sex: Male
  Weight: 86.18 kg

DRUGS (1)
  1. LISTERINE TOTAL CARE PLUS WHITENING [Suspect]
     Indication: BREATH ODOUR
     Dosage: HALF CAPFUL, ONCE IN THE MORNING AND ONCE IN THE EVENING
     Route: 048
     Dates: start: 20120113, end: 20120114

REACTIONS (5)
  - CHEMICAL INJURY [None]
  - OROPHARYNGEAL BLISTERING [None]
  - AGEUSIA [None]
  - TONGUE DISORDER [None]
  - HYPOAESTHESIA ORAL [None]
